FAERS Safety Report 8227318-9 (Version None)
Quarter: 2012Q1

REPORT INFORMATION
  Report Type: 
  Country: None (occurrence: None)
  Receive Date: 20120322
  Receipt Date: 20120320
  Transmission Date: 20120608
  Serious: Yes (Death)
  Sender: FDA-Public Use
  Company Number: PHHY2012BR024538

PATIENT
  Sex: Male

DRUGS (6)
  1. STALEVO 100 [Suspect]
     Indication: NERVOUS SYSTEM DISORDER
     Dosage: LEVODOPA 50 MG/CARBIDPA 12.5MG/ ENTACAPONE 200 MG
  2. PRAVACHOL [Concomitant]
     Indication: BLOOD CHOLESTEROL INCREASED
     Dosage: UNK UKN, UNK
  3. PHENYTOIN [Concomitant]
     Indication: NERVOUS SYSTEM DISORDER
     Dosage: UNK UKN, UNK
  4. METFORMIN HCL [Concomitant]
     Indication: DIABETES MELLITUS
     Dosage: UNK UKN, UNK
  5. ENALAPRIL MALEATE [Concomitant]
     Indication: HYPERTENSION
     Dosage: UNK UKN, UNK
  6. EXELON [Suspect]
     Indication: DEMENTIA ALZHEIMER'S TYPE
     Dosage: UNK UKN, UNK
     Route: 062

REACTIONS (2)
  - COLON CANCER [None]
  - MULTI-ORGAN FAILURE [None]
